FAERS Safety Report 24784893 (Version 1)
Quarter: 2024Q4

REPORT INFORMATION
  Report Type: Spontaneous
  Country: US (occurrence: US)
  Receive Date: 20241228
  Receipt Date: 20241228
  Transmission Date: 20250115
  Serious: No
  Sender: QUAGEN PHARMACEUTICALS
  Company Number: US-QUAGEN-2024QUASPO00590

PATIENT

DRUGS (3)
  1. LIDOCAINE [Suspect]
     Active Substance: LIDOCAINE
     Indication: Product used for unknown indication
     Route: 065
  2. GLUTATHIONE [Concomitant]
     Active Substance: GLUTATHIONE
     Indication: Product used for unknown indication
     Route: 065
  3. ESSIAC [Concomitant]
     Indication: Product used for unknown indication
     Route: 065

REACTIONS (5)
  - Type IV hypersensitivity reaction [Recovering/Resolving]
  - Back disorder [Recovering/Resolving]
  - Hypertonic bladder [Recovering/Resolving]
  - Skin disorder [Recovering/Resolving]
  - Eye disorder [Recovering/Resolving]
